FAERS Safety Report 6089514-9 (Version None)
Quarter: 2009Q1

REPORT INFORMATION
  Report Type: 
  Country: None (occurrence: None)
  Receive Date: 20090224
  Receipt Date: 20090212
  Transmission Date: 20090719
  Serious: Yes (Life-Threatening, Hospitalization, Other)
  Sender: FDA-Public Use
  Company Number: GB-PFIZER INC-2009172686

PATIENT

DRUGS (2)
  1. CHAMPIX [Suspect]
     Indication: SMOKING CESSATION THERAPY
     Dosage: 1 MG, 2X/DAY
     Route: 048
     Dates: start: 20081117, end: 20081217
  2. IBUPROFEN [Concomitant]

REACTIONS (4)
  - DEEP VEIN THROMBOSIS [None]
  - IRRITABILITY [None]
  - LIVER FUNCTION TEST ABNORMAL [None]
  - PAIN IN EXTREMITY [None]
